FAERS Safety Report 10373594 (Version 1)
Quarter: 2014Q3

REPORT INFORMATION
  Report Type: Report from Study
  Country: CA (occurrence: CA)
  Receive Date: 20140808
  Receipt Date: 20140808
  Transmission Date: 20150326
  Serious: Yes (Death, Hospitalization)
  Sender: FDA-Public Use
  Company Number: CA-JNJFOC-20140802525

PATIENT
  Sex: Female

DRUGS (2)
  1. ACETAMINOPHEN. [Suspect]
     Active Substance: ACETAMINOPHEN
     Route: 065
  2. ACETAMINOPHEN. [Suspect]
     Active Substance: ACETAMINOPHEN
     Indication: PRODUCT USED FOR UNKNOWN INDICATION
     Dosage: 2 EMPTY BOTTLES
     Route: 065
     Dates: start: 20000608, end: 20000610

REACTIONS (4)
  - Accidental overdose [Fatal]
  - Status epilepticus [Fatal]
  - Acute hepatic failure [Fatal]
  - Encephalopathy [Fatal]
